FAERS Safety Report 9301689 (Version 3)
Quarter: 2013Q2

REPORT INFORMATION
  Report Type: Report from Study
  Country: US (occurrence: US)
  Receive Date: 20130521
  Receipt Date: 20130612
  Transmission Date: 20140414
  Serious: Yes (Hospitalization, Other)
  Sender: FDA-Public Use
  Company Number: US-ACTELION-A-US2013-83273

PATIENT
  Age: 63 Year
  Sex: Female

DRUGS (3)
  1. VELETRI [Suspect]
     Indication: PULMONARY ARTERIAL HYPERTENSION
     Dosage: 13 NG/KG, PER MIN
     Route: 042
     Dates: start: 20130403
  2. LASIX [Suspect]
  3. SILDENAFIL [Concomitant]

REACTIONS (8)
  - Hypovolaemia [Recovering/Resolving]
  - Syncope [Recovering/Resolving]
  - Adverse drug reaction [Recovering/Resolving]
  - Oedema peripheral [Unknown]
  - Headache [Recovered/Resolved]
  - Pain in jaw [Recovered/Resolved]
  - Condition aggravated [Unknown]
  - Polyuria [Recovering/Resolving]
